FAERS Safety Report 9528610 (Version 1)
Quarter: 2013Q1

REPORT INFORMATION
  Report Type: Spontaneous
  Country: US (occurrence: None)
  Receive Date: 20130322
  Receipt Date: 20130322
  Transmission Date: 20140127
  Serious: Yes (Other)
  Sender: FDA-Public Use
  Company Number: 1-0612-25

PATIENT
  Age: 2 Year
  Sex: Female

DRUGS (2)
  1. DERMA-SMOOTHE/FS [Suspect]
     Indication: DERMATITIS ATOPIC
     Route: 061
  2. DERMA-SMOOTHE/FS [Suspect]
     Indication: ECZEMA
     Route: 061

REACTIONS (2)
  - Erythema [None]
  - Local swelling [None]
